FAERS Safety Report 9952487 (Version 1)
Quarter: 2014Q1

REPORT INFORMATION
  Report Type: Report from Study
  Country: DE (occurrence: DE)
  Receive Date: 20140304
  Receipt Date: 20140304
  Transmission Date: 20141002
  Serious: Yes (Hospitalization)
  Sender: FDA-Public Use
  Company Number: DE-EXELIXIS-XL18414004037

PATIENT
  Age: 75 Year
  Sex: Male
  Weight: 85 kg

DRUGS (11)
  1. XL184 [Suspect]
     Indication: PROSTATE CANCER
     Dosage: 60 MG, QD
     Route: 048
     Dates: start: 20130813
  2. XL184 [Suspect]
     Indication: PROSTATE CANCER
     Dosage: 5 MG, BID
     Route: 048
     Dates: start: 20130813
  3. ENALAPRIL [Concomitant]
  4. ELIGARD [Concomitant]
  5. ZOLEDRONACID [Concomitant]
  6. PANTOZOL [Concomitant]
  7. NOVAMINSULFON [Concomitant]
  8. PALLADON [Concomitant]
  9. LYRICA [Concomitant]
  10. ALLOPURINOL [Concomitant]
  11. CLEXANE [Concomitant]

REACTIONS (1)
  - Gastric antral vascular ectasia [Recovered/Resolved]
